FAERS Safety Report 8596538-6 (Version None)
Quarter: 2012Q3

REPORT INFORMATION
  Report Type: 
  Country: None (occurrence: None)
  Receive Date: 20120806
  Receipt Date: 20120806
  Transmission Date: 20120928
  Serious: Yes (Life-Threatening)
  Sender: FDA-Public Use
  Company Number: None

PATIENT
  Age: 59 Year
  Sex: Male
  Weight: 117 kg

DRUGS (1)
  1. CLOZARIL [Suspect]
     Indication: SCHIZOPHRENIA
     Dosage: 150MG BID PO
     Route: 048
     Dates: start: 20120403, end: 20120418

REACTIONS (7)
  - NEUROLEPTIC MALIGNANT SYNDROME [None]
  - ANXIETY [None]
  - TRACHEOBRONCHITIS [None]
  - URINARY INCONTINENCE [None]
  - DEEP VEIN THROMBOSIS [None]
  - ATRIAL FIBRILLATION [None]
  - FAECAL INCONTINENCE [None]
